FAERS Safety Report 11236363 (Version 1)
Quarter: 2015Q3

REPORT INFORMATION
  Report Type: Spontaneous
  Country: GB (occurrence: GB)
  Receive Date: 20150702
  Receipt Date: 20150702
  Transmission Date: 20151125
  Serious: Yes (Hospitalization)
  Sender: FDA-Public Use
  Company Number: PHHY2015GB077704

PATIENT
  Age: 35 Year
  Sex: Male

DRUGS (2)
  1. INDOMETHACIN. [Suspect]
     Active Substance: INDOMETHACIN
     Indication: OEDEMA PERIPHERAL
     Route: 065
  2. INDOMETHACIN. [Suspect]
     Active Substance: INDOMETHACIN
     Indication: PROTEINURIA

REACTIONS (6)
  - Abdominal pain [Recovered/Resolved]
  - Pyrexia [Recovered/Resolved]
  - Crohn^s disease [Recovered/Resolved]
  - Colitis [Unknown]
  - Enteritis [Recovered/Resolved]
  - Abdominal rigidity [Recovered/Resolved]
